FAERS Safety Report 6356891-0 (Version None)
Quarter: 2009Q3

REPORT INFORMATION
  Report Type: 
  Country: None (occurrence: None)
  Receive Date: 20090910
  Receipt Date: 20090910
  Transmission Date: 20100115
  Serious: Yes (Disabling)
  Sender: FDA-Public Use
  Company Number: None

PATIENT
  Age: 57 Year
  Sex: Male
  Weight: 127 kg

DRUGS (2)
  1. DICLOFENAC SODIUM [Suspect]
     Indication: BACK PAIN
     Dosage: 75 MG BID PO
     Route: 048
     Dates: start: 20090101, end: 20090830
  2. DICLOFENAC SODIUM [Suspect]
     Indication: OSTEOARTHRITIS
     Dosage: 75 MG BID PO
     Route: 048
     Dates: start: 20090101, end: 20090830

REACTIONS (2)
  - BLOOD CREATININE INCREASED [None]
  - CHEST PAIN [None]
